FAERS Safety Report 26151200 (Version 1)
Quarter: 2025Q4

REPORT INFORMATION
  Report Type: Report from Study
  Country: CA (occurrence: CA)
  Receive Date: 20251212
  Receipt Date: 20251212
  Transmission Date: 20260117
  Serious: Yes (Other)
  Sender: PFIZER
  Company Number: CA-PFIZER INC-202500240783

PATIENT
  Age: 77 Year
  Sex: Female

DRUGS (6)
  1. RUXIENCE [Suspect]
     Active Substance: RITUXIMAB-PVVR
     Indication: Rheumatoid arthritis
     Dosage: 1000 MG, DAY 1 AND DAY 15
     Route: 042
     Dates: start: 20250612
  2. RUXIENCE [Suspect]
     Active Substance: RITUXIMAB-PVVR
     Dosage: 1000 MG, DAY 1 AND DAY 15
     Route: 042
     Dates: start: 20250627
  3. BISOPROLOL [Concomitant]
     Active Substance: BISOPROLOL
     Dosage: 1 DF
  4. CANDESARTAN [Concomitant]
     Active Substance: CANDESARTAN
     Dosage: 1 DF
  5. JARDIANCE [Concomitant]
     Active Substance: EMPAGLIFLOZIN
     Dosage: 1 DF
  6. SULFASALAZINE [Concomitant]
     Active Substance: SULFASALAZINE
     Dosage: 1 DF

REACTIONS (3)
  - Cerebrovascular accident [Unknown]
  - Pharyngeal disorder [Unknown]
  - Throat cancer [Unknown]

NARRATIVE: CASE EVENT DATE: 20250101
